FAERS Safety Report 6639610-X (Version None)
Quarter: 2010Q1

REPORT INFORMATION
  Report Type: 
  Country: None (occurrence: None)
  Receive Date: 20100318
  Receipt Date: 20100308
  Transmission Date: 20100710
  Serious: No
  Sender: FDA-Public Use
  Company Number: US-ROXANE LABORATORIES, INC.-2010-RO-00246RO

PATIENT
  Age: 46 Year
  Sex: Male

DRUGS (1)
  1. METHADONE HCL [Suspect]

REACTIONS (2)
  - DELUSIONAL PERCEPTION [None]
  - PAIN [None]
